FAERS Safety Report 4555040-9 (Version None)
Quarter: 2005Q1

REPORT INFORMATION
  Report Type: 
  Country: None (occurrence: None)
  Receive Date: 20041228
  Receipt Date: 20040409
  Transmission Date: 20050727
  Serious: Yes (Other)
  Sender: FDA-Public Use
  Company Number: PHEH2004US04080

PATIENT
  Age: 66 Year
  Sex: Female

DRUGS (3)
  1. AREDIA [Suspect]
     Dosage: 60-90MG OVER 1-2 HOURS
     Dates: start: 20010412, end: 20030724
  2. PREDNISONE [Concomitant]
  3. TAMOXIFEN CITRATE [Concomitant]

REACTIONS (2)
  - ORAL SURGERY [None]
  - OSTEONECROSIS [None]
